FAERS Safety Report 8111422-X (Version None)
Quarter: 2012Q1

REPORT INFORMATION
  Report Type: 
  Country: None (occurrence: None)
  Receive Date: 20120203
  Receipt Date: 20111129
  Transmission Date: 20120608
  Serious: No
  Sender: FDA-Public Use
  Company Number: US-GLAXOSMITHKLINE-A0955775A

PATIENT
  Sex: Female

DRUGS (5)
  1. ESTRADIOL [Concomitant]
  2. ATENOLOL [Concomitant]
  3. HYDROCHLOROTHIAZIDE [Concomitant]
  4. METFORMIN HCL [Concomitant]
  5. LAMICTAL [Suspect]
     Indication: MOOD SWINGS
     Dosage: 100MG TWICE PER DAY
     Route: 048
     Dates: start: 20060101, end: 20111001

REACTIONS (1)
  - RASH [None]
